FAERS Safety Report 8287379-8 (Version None)
Quarter: 2012Q2

REPORT INFORMATION
  Report Type: 
  Country: None (occurrence: None)
  Receive Date: 20120416
  Receipt Date: 20120411
  Transmission Date: 20120825
  Serious: Yes (Hospitalization, Other)
  Sender: FDA-Public Use
  Company Number: US-PFIZER INC-2012090895

PATIENT
  Sex: Male
  Weight: 86.168 kg

DRUGS (13)
  1. DILTIAZEM [Concomitant]
     Dosage: 90 MG, 2X/DAY
     Dates: start: 20120201
  2. URSODIOL [Concomitant]
     Indication: GALLBLADDER DISORDER
     Dosage: 300 MG, 2X/DAY
     Route: 048
     Dates: start: 20110101
  3. ACETYLSALICYLIC ACID [Concomitant]
     Indication: CARDIAC DISORDER
     Dosage: 81 MG,DAILY
     Dates: start: 20110901
  4. REVATIO [Suspect]
     Indication: PULMONARY HYPERTENSION
     Dosage: 20 MG, 3X/DAY
     Route: 048
     Dates: start: 20111001
  5. DIGOXIN [Suspect]
     Indication: CARDIAC DISORDER
     Dosage: 0.125 MG,DAILY
     Dates: start: 20070101, end: 20120101
  6. TAMSULOSIN [Concomitant]
     Indication: PROSTATIC DISORDER
     Dosage: 0.4 MG,DAILY
  7. PRAVASTATIN SODIUM [Concomitant]
     Indication: BLOOD CHOLESTEROL ABNORMAL
     Dosage: 20 MG,DAILY
  8. PRILOSEC [Concomitant]
     Indication: GASTRIC DISORDER
     Dosage: 40 MG,DAILY
     Dates: start: 20070101
  9. DILTIAZEM [Concomitant]
     Indication: HYPERTENSION
     Dosage: 120 MG, 2X/DAY
     Dates: start: 20070101, end: 20120201
  10. DIGOXIN [Suspect]
     Dosage: UNK
     Dates: start: 20120301
  11. URSODIOL [Concomitant]
     Dosage: 600 MG, UNK
     Route: 048
     Dates: start: 20120411
  12. FUROSEMIDE [Concomitant]
     Indication: FLUID RETENTION
     Dosage: 20 MG, 2X/DAY
     Dates: start: 20120201
  13. BROMOCRIPTINE [Concomitant]
     Indication: HYPOTHALAMO-PITUITARY DISORDER
     Dosage: 2.5 MG,DAILY

REACTIONS (2)
  - TOXICITY TO VARIOUS AGENTS [None]
  - PNEUMONIA [None]
